FAERS Safety Report 17853247 (Version 3)
Quarter: 2020Q2

REPORT INFORMATION
  Report Type: Spontaneous
  Country: CN (occurrence: CN)
  Receive Date: 20200603
  Receipt Date: 20200610
  Transmission Date: 20200714
  Serious: Yes (Death)
  Sender: FDA-Public Use
  Company Number: CN-ROCHE-2613057

PATIENT
  Sex: Male

DRUGS (3)
  1. RALTITREXED [Concomitant]
     Active Substance: RALTITREXED
     Dosage: DAY 2
     Route: 065
     Dates: start: 20200427
  2. ALBUMIN [Concomitant]
     Active Substance: ALBUMIN HUMAN
  3. AVASTIN [Suspect]
     Active Substance: BEVACIZUMAB
     Indication: COLON CANCER
     Route: 065
     Dates: start: 20200427

REACTIONS (7)
  - Faeces discoloured [Unknown]
  - Cachexia [Fatal]
  - Haemorrhage [Unknown]
  - Mouth ulceration [Unknown]
  - Somnolence [Unknown]
  - Multiple organ dysfunction syndrome [Fatal]
  - Decreased appetite [Unknown]

NARRATIVE: CASE EVENT DATE: 20200501
